FAERS Safety Report 9515504 (Version 4)
Quarter: 2015Q2

REPORT INFORMATION
  Report Type: Report from Study
  Country: CN (occurrence: CN)
  Receive Date: 20130911
  Receipt Date: 20150512
  Transmission Date: 20150821
  Serious: Yes (Death, Other)
  Sender: FDA-Public Use
  Company Number: PHHY2013CN098265

PATIENT
  Age: 45 Year
  Sex: Male
  Weight: 60 kg

DRUGS (1)
  1. GLIVEC [Suspect]
     Active Substance: IMATINIB MESYLATE
     Indication: CHRONIC MYELOID LEUKAEMIA
     Dosage: 600 MG, QD
     Route: 048
     Dates: start: 20130416

REACTIONS (5)
  - Haemorrhage intracranial [Fatal]
  - Central nervous system neoplasm [Unknown]
  - Chronic myeloid leukaemia [Unknown]
  - Central nervous system leukaemia [Unknown]
  - Malignant neoplasm progression [Unknown]

NARRATIVE: CASE EVENT DATE: 20130831
